FAERS Safety Report 19671309 (Version 4)
Quarter: 2021Q4

REPORT INFORMATION
  Report Type: Report from Study
  Country: US (occurrence: US)
  Receive Date: 20210806
  Receipt Date: 20211202
  Transmission Date: 20220303
  Serious: Yes (Other)
  Sender: FDA-Public Use
  Company Number: NVSC2021US177462

PATIENT
  Sex: Female

DRUGS (5)
  1. MAYZENT [Suspect]
     Active Substance: SIPONIMOD
     Indication: Product used for unknown indication
     Dosage: 2 MG, QD
     Route: 048
  2. MAYZENT [Suspect]
     Active Substance: SIPONIMOD
     Dosage: 1 MG
     Route: 065
  3. MAYZENT [Suspect]
     Active Substance: SIPONIMOD
     Dosage: 0.75 MG, QD (SLOWER TITRATION)
     Route: 048
  4. MAYZENT [Suspect]
     Active Substance: SIPONIMOD
     Dosage: 2 MG, QD
     Route: 048
     Dates: start: 20210804
  5. MAYZENT [Suspect]
     Active Substance: SIPONIMOD
     Dosage: UNK
     Route: 065

REACTIONS (5)
  - Dizziness [Recovering/Resolving]
  - Drug intolerance [Unknown]
  - Movement disorder [Unknown]
  - Heart rate decreased [Unknown]
  - Intentional product use issue [Unknown]
